FAERS Safety Report 18209468 (Version 4)
Quarter: 2020Q4

REPORT INFORMATION
  Report Type: Spontaneous
  Country: US (occurrence: US)
  Receive Date: 20200828
  Receipt Date: 20201007
  Transmission Date: 20210113
  Serious: Yes (Other)
  Sender: FDA-Public Use
  Company Number: US-009507513-2008USA012796

PATIENT
  Age: 28 Year
  Sex: Female
  Weight: 90.25 kg

DRUGS (4)
  1. NEXPLANON [Suspect]
     Active Substance: ETONOGESTREL
     Indication: CONTRACEPTION
     Dosage: 1 IMPLANT, ONCE IN LEFT ARM
     Route: 059
     Dates: start: 20200423, end: 20200812
  2. VENLAFAXINE HYDROCHLORIDE. [Concomitant]
     Active Substance: VENLAFAXINE HYDROCHLORIDE
     Indication: DEPRESSION
     Dosage: 37.5 MILLIGRAM, DAILY
     Route: 048
     Dates: start: 20200515
  3. LEVOTHYROXINE SODIUM. [Concomitant]
     Active Substance: LEVOTHYROXINE SODIUM
     Indication: THYROID DISORDER
     Dosage: 125 MICROGRAM, DAILY
     Route: 048
     Dates: start: 20200520, end: 20200903
  4. LEVOTHYROXINE SODIUM. [Concomitant]
     Active Substance: LEVOTHYROXINE SODIUM
     Dosage: 200 MICROGRAM, DAILY
     Route: 048
     Dates: start: 20200903

REACTIONS (7)
  - Unintended pregnancy [Not Recovered/Not Resolved]
  - Nausea [Recovering/Resolving]
  - Complication associated with device [Recovered/Resolved]
  - Weight increased [Recovering/Resolving]
  - Weight increased [Recovering/Resolving]
  - Nausea [Recovering/Resolving]
  - Pregnancy with implant contraceptive [Not Recovered/Not Resolved]

NARRATIVE: CASE EVENT DATE: 20200423
